FAERS Safety Report 21084511 (Version 1)
Quarter: 2022Q3

REPORT INFORMATION
  Report Type: Spontaneous
  Country: US (occurrence: US)
  Receive Date: 20220714
  Receipt Date: 20220714
  Transmission Date: 20221026
  Serious: No
  Sender: FDA-Public Use
  Company Number: US-JAZZ-2022-US-019522

PATIENT
  Sex: Male

DRUGS (4)
  1. EPIDIOLEX [Suspect]
     Active Substance: CANNABIDIOL
     Indication: Idiopathic generalised epilepsy
     Dosage: TAKE 1.1 ML BY MOUTH TWICE DAILY FOR 1 WEEK
     Route: 048
     Dates: start: 20220514
  2. EPIDIOLEX [Suspect]
     Active Substance: CANNABIDIOL
     Dosage: THEN 2.2 ML TWICE DAILY FOR 1 WEEK
     Route: 048
  3. EPIDIOLEX [Suspect]
     Active Substance: CANNABIDIOL
     Dosage: THEN 3.3 ML TWICE DAILY FOR 1 WEEK
     Route: 048
  4. EPIDIOLEX [Suspect]
     Active Substance: CANNABIDIOL
     Dosage: THEN 4.4 ML TWICE DAILY THEREAFTER
     Route: 048

REACTIONS (2)
  - Unevaluable event [Unknown]
  - Off label use [Unknown]
